FAERS Safety Report 9093304 (Version 1)
Quarter: 2013Q1

REPORT INFORMATION
  Report Type: Report from Study
  Country: US (occurrence: US)
  Receive Date: 20130131
  Receipt Date: 20130131
  Transmission Date: 20140127
  Serious: No
  Sender: FDA-Public Use
  Company Number: US-ABBOTT-12P-163-1002860-00

PATIENT
  Age: 53 Year
  Sex: Female

DRUGS (3)
  1. HUMIRA [Suspect]
     Indication: RHEUMATOID ARTHRITIS
     Route: 058
     Dates: start: 201205, end: 20120920
  2. HCTZ [Concomitant]
     Indication: HYPERTENSION
  3. LISINOPRIL [Concomitant]
     Indication: HYPERTENSION

REACTIONS (4)
  - Ovarian cyst [Not Recovered/Not Resolved]
  - Rash [Not Recovered/Not Resolved]
  - Contusion [Not Recovered/Not Resolved]
  - Depression [Not Recovered/Not Resolved]
